FAERS Safety Report 11599552 (Version 1)
Quarter: 2015Q4

REPORT INFORMATION
  Report Type: Spontaneous
  Country: IT (occurrence: IT)
  Receive Date: 20151006
  Receipt Date: 20151006
  Transmission Date: 20160304
  Serious: Yes (Other)
  Sender: FDA-Public Use
  Company Number: IT-BAYER-2015-432130

PATIENT
  Sex: Female
  Weight: 1.73 kg

DRUGS (10)
  1. CYCLOSPORINE. [Concomitant]
     Active Substance: CYCLOSPORINE
     Route: 064
  2. AZATHIOPRINE. [Concomitant]
     Active Substance: AZATHIOPRINE
     Route: 064
  3. ACETYLSALICYLIC ACID({=100 MG) [Suspect]
     Active Substance: ASPIRIN
     Route: 064
  4. ACETYLSALICYLIC ACID({=100 MG) [Suspect]
     Active Substance: ASPIRIN
     Route: 064
  5. METHYLDOPA. [Concomitant]
     Active Substance: METHYLDOPA
     Route: 064
  6. PREDNISONE. [Concomitant]
     Active Substance: PREDNISONE
     Route: 064
  7. METHYLDOPA. [Concomitant]
     Active Substance: METHYLDOPA
     Route: 064
  8. PREDNISONE. [Concomitant]
     Active Substance: PREDNISONE
     Route: 064
  9. CYCLOSPORINE. [Concomitant]
     Active Substance: CYCLOSPORINE
     Route: 064
  10. AZATHIOPRINE. [Concomitant]
     Active Substance: AZATHIOPRINE
     Route: 064

REACTIONS (4)
  - Low birth weight baby [None]
  - Foetal exposure during pregnancy [None]
  - Dyspnoea [None]
  - Premature baby [None]
